FAERS Safety Report 9925904 (Version 2)
Quarter: 2014Q1

REPORT INFORMATION
  Report Type: Spontaneous
  Country: CA (occurrence: CA)
  Receive Date: 20140226
  Receipt Date: 20140226
  Transmission Date: 20141002
  Serious: Yes (Other)
  Sender: FDA-Public Use
  Company Number: CA-AMGEN-CANSP2014008255

PATIENT
  Age: 78 Year
  Sex: Female
  Weight: 52.61 kg

DRUGS (6)
  1. PROLIA [Suspect]
     Indication: OSTEOPOROSIS POSTMENOPAUSAL
     Dosage: 60 MG, Q6MO
     Route: 065
     Dates: start: 20120419
  2. CLONAZEPAM [Concomitant]
     Indication: INSOMNIA
     Dosage: 0.5 UNK, UNK
     Route: 048
     Dates: start: 20081022
  3. VALPROIC ACID [Concomitant]
     Indication: EPILEPSY
     Dosage: 500 MG, UNK
     Route: 048
     Dates: start: 2006
  4. SYNTHROID [Concomitant]
     Indication: HYPOTHYROIDISM
     Dosage: 50 MUG, QD
     Dates: start: 20131219
  5. RANITIDINE [Concomitant]
     Indication: GASTROOESOPHAGEAL REFLUX DISEASE
     Dosage: 150 MG, BID
     Route: 048
     Dates: start: 20130321
  6. TAMOXIFEN [Concomitant]
     Indication: BREAST CANCER
     Dosage: 20 MG, QD
     Route: 048
     Dates: start: 2012

REACTIONS (5)
  - Viral infection [Unknown]
  - Pleural effusion [Unknown]
  - Cardioversion [Unknown]
  - Pericardial effusion [Recovered/Resolved]
  - Malaise [Unknown]
